FAERS Safety Report 12023089 (Version 1)
Quarter: 2016Q1

REPORT INFORMATION
  Report Type: Report from Study
  Country: US (occurrence: US)
  Receive Date: 20160206
  Receipt Date: 20160206
  Transmission Date: 20160526
  Serious: Yes (Hospitalization)
  Sender: FDA-Public Use
  Company Number: US-ABBVIE-15K-163-1474130-00

PATIENT
  Age: 48 Year
  Sex: Male
  Weight: 63.56 kg

DRUGS (1)
  1. HUMIRA [Suspect]
     Active Substance: ADALIMUMAB
     Indication: CROHN^S DISEASE
     Route: 058
     Dates: start: 201507

REACTIONS (6)
  - Fractured coccyx [Recovering/Resolving]
  - Patella fracture [Recovering/Resolving]
  - Injury [Unknown]
  - Clavicle fracture [Recovering/Resolving]
  - Peripheral swelling [Not Recovered/Not Resolved]
  - Road traffic accident [Recovering/Resolving]

NARRATIVE: CASE EVENT DATE: 2015
